FAERS Safety Report 24953348 (Version 5)
Quarter: 2025Q2

REPORT INFORMATION
  Report Type: Spontaneous
  Country: US (occurrence: US)
  Receive Date: 20250211
  Receipt Date: 20250424
  Transmission Date: 20250717
  Serious: No
  Sender: BRISTOL-MYERS SQUIBB COMPANY
  Company Number: US-BRISTOL-MYERS SQUIBB COMPANY-2025-019080

PATIENT
  Age: 73 Year
  Sex: Female

DRUGS (2)
  1. LENALIDOMIDE [Suspect]
     Active Substance: LENALIDOMIDE
     Indication: Myelodysplastic syndrome
     Route: 048
  2. LENALIDOMIDE [Suspect]
     Active Substance: LENALIDOMIDE
     Dosage: TAKE 1 CAPSULE WHOLE BY MOUTH WITH WATER AT SAME DAILY. HOLD DRUG ON WEDNESDAYS + SATURDAYS. TAKE 5
     Route: 048

REACTIONS (4)
  - White blood cell count decreased [Recovering/Resolving]
  - Laboratory test abnormal [Recovering/Resolving]
  - Off label use [Recovering/Resolving]
  - Gastrooesophageal reflux disease [Recovered/Resolved]
